FAERS Safety Report 15656768 (Version 1)
Quarter: 2018Q4

REPORT INFORMATION
  Report Type: Spontaneous
  Country: US (occurrence: US)
  Receive Date: 20181126
  Receipt Date: 20181126
  Transmission Date: 20190205
  Serious: Yes (Hospitalization)
  Sender: FDA-Public Use
  Company Number: None

PATIENT
  Age: 41 Year
  Sex: Male

DRUGS (5)
  1. MULTIVITAMIN WOMEN [Concomitant]
  2. ADCIRCA [Suspect]
     Active Substance: TADALAFIL
     Indication: PULMONARY ARTERIAL HYPERTENSION
     Route: 048
     Dates: start: 20131003
  3. OPSUMIT [Concomitant]
     Active Substance: MACITENTAN
  4. ASPIRIN. [Concomitant]
     Active Substance: ASPIRIN
  5. UPTRAVI [Concomitant]
     Active Substance: SELEXIPAG

REACTIONS (2)
  - Seizure [None]
  - Product dose omission [None]

NARRATIVE: CASE EVENT DATE: 20181112
